FAERS Safety Report 14412932 (Version 4)
Quarter: 2018Q3

REPORT INFORMATION
  Report Type: Spontaneous
  Country: FR (occurrence: FR)
  Receive Date: 20180119
  Receipt Date: 20180905
  Transmission Date: 20181010
  Serious: Yes (Life-Threatening, Hospitalization, Disabling, Other)
  Sender: FDA-Public Use
  Company Number: FR-BAUSCH-BL-2018-000633

PATIENT
  Age: 72 Year
  Sex: Male
  Weight: 108 kg

DRUGS (11)
  1. AZOPT [Concomitant]
     Active Substance: BRINZOLAMIDE
     Indication: PRODUCT USED FOR UNKNOWN INDICATION
     Route: 065
  2. AZOPT [Concomitant]
     Active Substance: BRINZOLAMIDE
  3. LESCOL [Suspect]
     Active Substance: FLUVASTATIN SODIUM
     Indication: PRODUCT USED FOR UNKNOWN INDICATION
     Route: 065
  4. FLUVASTATIN MYLAN [Suspect]
     Active Substance: FLUVASTATIN SODIUM
     Indication: PRODUCT USED FOR UNKNOWN INDICATION
     Route: 065
  5. FLUVASTATINE ZENTIVA [Suspect]
     Active Substance: FLUVASTATIN SODIUM
     Indication: PRODUCT USED FOR UNKNOWN INDICATION
     Route: 065
  6. FENOFIBRATE. [Suspect]
     Active Substance: FENOFIBRATE
     Indication: PRODUCT USED FOR UNKNOWN INDICATION
     Route: 048
  7. FLUVASTATIN [Suspect]
     Active Substance: FLUVASTATIN SODIUM
     Indication: PRODUCT USED FOR UNKNOWN INDICATION
     Route: 065
  8. KARDEGIC [Concomitant]
     Active Substance: ASPIRIN DL-LYSINE
     Indication: PRODUCT USED FOR UNKNOWN INDICATION
     Route: 065
  9. LIPANTHYL [Suspect]
     Active Substance: FENOFIBRATE
     Indication: PRODUCT USED FOR UNKNOWN INDICATION
     Route: 048
  10. SIMVASTATINE [Concomitant]
     Active Substance: SIMVASTATIN
     Indication: PRODUCT USED FOR UNKNOWN INDICATION
  11. TRINITRINE [Concomitant]
     Active Substance: NITROGLYCERIN
     Indication: PRODUCT USED FOR UNKNOWN INDICATION
     Dosage: SPRAY (EXECPT INHALATION)
     Route: 065

REACTIONS (14)
  - Gait disturbance [Unknown]
  - Septic shock [Unknown]
  - Thrombosis [Unknown]
  - Pancreatic necrosis [Recovered/Resolved]
  - Pancreatitis acute [Recovered/Resolved]
  - Pneumonia aspiration [Unknown]
  - Atrial fibrillation [Unknown]
  - Myalgia [Unknown]
  - Renal impairment [Unknown]
  - Ureteric injury [Unknown]
  - Acute respiratory distress syndrome [Unknown]
  - Drug intolerance [Unknown]
  - Liver disorder [Unknown]
  - Disturbance in attention [Unknown]

NARRATIVE: CASE EVENT DATE: 2016
